FAERS Safety Report 21320168 (Version 3)
Quarter: 2022Q3

REPORT INFORMATION
  Report Type: Spontaneous
  Country: US (occurrence: US)
  Receive Date: 20220911
  Receipt Date: 20220927
  Transmission Date: 20221026
  Serious: No
  Sender: FDA-Public Use
  Company Number: US-SA-SAC20220906000540

PATIENT
  Age: 46 Year
  Sex: Female

DRUGS (2)
  1. FABRAZYME [Suspect]
     Active Substance: AGALSIDASE BETA
     Indication: Fabry^s disease
     Dosage: 140 MG, QOW
     Route: 041
     Dates: start: 20210521
  2. FABRAZYME [Suspect]
     Active Substance: AGALSIDASE BETA
     Dosage: 140 MG, QOW
     Route: 042
     Dates: start: 20220607

REACTIONS (1)
  - Poor venous access [Unknown]

NARRATIVE: CASE EVENT DATE: 20220801
